FAERS Safety Report 8870109 (Version 1)
Quarter: 2012Q4

REPORT INFORMATION
  Report Type: 
  Country: FR (occurrence: FR)
  Receive Date: 20121028
  Receipt Date: 20121028
  Transmission Date: 20130627
  Serious: Yes (Hospitalization)
  Sender: FDA-Public Use
  Company Number: FR-MYLANLABS-2012S1021531

PATIENT
  Age: 17 Year
  Sex: Female

DRUGS (4)
  1. METHYLPREDNISOLONE [Suspect]
     Indication: ACUTE RESPIRATORY DISTRESS SYNDROME
     Route: 042
  2. ITRACONAZOLE [Interacting]
     Route: 065
  3. AZITHROMYCIN [Interacting]
     Route: 065
  4. SALBUTAMOL [Concomitant]
     Indication: CYSTIC FIBROSIS
     Route: 065

REACTIONS (3)
  - Drug interaction [Recovered/Resolved]
  - Hypertension [Recovered/Resolved]
  - Bradycardia [Recovered/Resolved]
